FAERS Safety Report 4439079-X (Version None)
Quarter: 2004Q3

REPORT INFORMATION
  Report Type: 
  Country: None (occurrence: None)
  Receive Date: 20040901
  Receipt Date: 20040823
  Transmission Date: 20050211
  Serious: Yes (Hospitalization)
  Sender: FDA-Public Use
  Company Number: 2004MP0031

PATIENT
  Age: 48 Year
  Sex: Female

DRUGS (10)
  1. PAROXETINE HCL [Suspect]
     Indication: DRUG USE FOR UNKNOWN INDICATION
     Dosage: 20MG PER DAY
     Route: 048
     Dates: end: 20040723
  2. LASIX [Concomitant]
     Dosage: 5MG PER DAY
     Route: 048
  3. CO-RENITEN [Concomitant]
     Route: 048
  4. MOTILIUM [Concomitant]
     Dosage: 10MG TWICE PER DAY
     Route: 048
  5. ACETALGIN [Concomitant]
     Dosage: 500MG TWICE PER DAY
     Route: 048
  6. CORDARONE [Concomitant]
     Dosage: 200MG PER DAY
     Route: 048
  7. LESCOL [Concomitant]
     Dosage: 40MG PER DAY
     Route: 048
  8. DIAMOX [Concomitant]
     Dosage: 250MG THREE TIMES PER WEEK
     Route: 048
  9. SINTROM [Concomitant]
     Route: 048
  10. INSULIN MIXTARD [Concomitant]
     Route: 058

REACTIONS (6)
  - ASTHENIA [None]
  - DEHYDRATION [None]
  - DRUG LEVEL INCREASED [None]
  - MALAISE [None]
  - OVERDOSE [None]
  - SOMNOLENCE [None]
